FAERS Safety Report 7157872-X (Version None)
Quarter: 2010Q4

REPORT INFORMATION
  Report Type: 
  Country: None (occurrence: None)
  Receive Date: 20101118
  Receipt Date: 20101105
  Transmission Date: 20110411
  Serious: Yes (Life-Threatening, Hospitalization, Other)
  Sender: FDA-Public Use
  Company Number: AEUSA201000414

PATIENT
  Age: 54 Year
  Sex: Female

DRUGS (8)
  1. PROLASTIN-C [Suspect]
     Indication: ALPHA-1 ANTI-TRYPSIN DEFICIENCY
     Dosage: 3 GM; QW; IV
     Route: 042
     Dates: start: 20100101, end: 20101029
  2. BENADRYL [Concomitant]
  3. LYRICA [Concomitant]
  4. PERCOCET [Concomitant]
  5. KADIAN [Concomitant]
  6. VALIUM [Concomitant]
  7. DUONEB [Concomitant]
  8. PROZAC [Concomitant]

REACTIONS (7)
  - CHRONIC OBSTRUCTIVE PULMONARY DISEASE [None]
  - COGNITIVE DISORDER [None]
  - CONDITION AGGRAVATED [None]
  - DRUG HYPERSENSITIVITY [None]
  - INFUSION RELATED REACTION [None]
  - LOSS OF CONSCIOUSNESS [None]
  - PYREXIA [None]
